FAERS Safety Report 5647879-3 (Version None)
Quarter: 2008Q1

REPORT INFORMATION
  Report Type: 
  Country: None (occurrence: None)
  Receive Date: 20080228
  Receipt Date: 20080212
  Transmission Date: 20080703
  Serious: Yes (Hospitalization)
  Sender: FDA-Public Use
  Company Number: 1-15778352

PATIENT
  Sex: Male

DRUGS (1)
  1. FENTANYL [Suspect]
     Dosage: 50MCG/HR EVERY 72 HRS, TRANSDERMAL
     Route: 062

REACTIONS (5)
  - CATHETER RELATED INFECTION [None]
  - HEART RATE INCREASED [None]
  - HYPERHIDROSIS [None]
  - RENAL FAILURE [None]
  - URINARY TRACT INFECTION [None]
